FAERS Safety Report 5661646-6 (Version None)
Quarter: 2008Q1

REPORT INFORMATION
  Report Type: 
  Country: None (occurrence: None)
  Receive Date: 20080312
  Receipt Date: 20080228
  Transmission Date: 20080703
  Serious: Yes (Hospitalization)
  Sender: FDA-Public Use
  Company Number: JP-AMGEN-US264796

PATIENT
  Age: 67 Year
  Sex: Female
  Weight: 36 kg

DRUGS (6)
  1. ENBREL [Suspect]
     Indication: RHEUMATOID ARTHRITIS
     Route: 058
     Dates: start: 20071208, end: 20071222
  2. EPOETIN BETA [Concomitant]
     Indication: ANAEMIA
     Route: 042
  3. FOLIAMIN [Concomitant]
     Indication: ANAEMIA
     Route: 048
  4. FAMOTIDINE [Concomitant]
     Indication: GASTRIC ULCER
     Route: 048
  5. RISUMIC [Concomitant]
     Indication: HYPOTENSION
     Route: 048
  6. PANALDINE [Concomitant]
     Route: 048

REACTIONS (2)
  - C-REACTIVE PROTEIN INCREASED [None]
  - LIVER FUNCTION TEST ABNORMAL [None]
